FAERS Safety Report 4976456-2 (Version None)
Quarter: 2006Q2

REPORT INFORMATION
  Report Type: 
  Country: None (occurrence: None)
  Receive Date: 20060419
  Receipt Date: 20041028
  Transmission Date: 20061013
  Serious: Yes (Hospitalization)
  Sender: FDA-Public Use
  Company Number: CA-ROCHE-384539

PATIENT
  Age: 64 Year
  Sex: Female
  Weight: 113 kg

DRUGS (13)
  1. CAPECITABINE [Suspect]
     Dosage: GIVEN FROM DAYS ONE TO FOURTEEN OF A THREE WEEK CYCLE.
     Route: 048
     Dates: start: 20041013
  2. BLINDED BEVACIZUMAB [Suspect]
     Route: 042
     Dates: start: 20041013
  3. OXALIPLATIN [Suspect]
     Route: 042
     Dates: start: 20041013
  4. PREMARIN [Concomitant]
     Dates: start: 19940615, end: 20041027
  5. CELEXA [Concomitant]
     Dates: start: 20040615, end: 20041113
  6. CRESTOR [Concomitant]
     Dates: start: 20030615, end: 20041027
  7. RIVOTRIL [Concomitant]
     Dates: start: 19990615, end: 20041027
  8. PERCOCET [Concomitant]
     Dates: start: 20040615, end: 20041027
  9. CENTRUM PROTEGRA [Concomitant]
     Dates: start: 19940615, end: 20041027
  10. FLUCONAZOLE [Concomitant]
     Dates: start: 20041029, end: 20041101
  11. PROCHLORPERAZINE [Concomitant]
     Dates: start: 20041027, end: 20041113
  12. VITAMIN B6 [Concomitant]
     Dates: start: 20041027, end: 20041117
  13. FRAGMIN [Concomitant]
     Dates: start: 20041029, end: 20041101

REACTIONS (12)
  - ACUTE RESPIRATORY FAILURE [None]
  - ATRIAL FIBRILLATION [None]
  - DIARRHOEA [None]
  - GASTROINTESTINAL HAEMORRHAGE [None]
  - HYDRONEPHROSIS [None]
  - METABOLIC ACIDOSIS [None]
  - MUCOSAL INFLAMMATION [None]
  - PNEUMONIA [None]
  - PNEUMONIA ASPIRATION [None]
  - PULMONARY EMBOLISM [None]
  - RENAL TUBULAR NECROSIS [None]
  - UPPER GASTROINTESTINAL HAEMORRHAGE [None]
